FAERS Safety Report 5166388-1 (Version None)
Quarter: 2006Q4

REPORT INFORMATION
  Report Type: 
  Country: None (occurrence: None)
  Receive Date: 20061129
  Receipt Date: 20061115
  Transmission Date: 20070319
  Serious: Yes (Hospitalization)
  Sender: FDA-Public Use
  Company Number: HP200600177

PATIENT
  Sex: Female

DRUGS (1)
  1. EMBELINE [Suspect]
     Indication: DRUG USE FOR UNKNOWN INDICATION
     Dosage: PRN, TOPICAL
     Route: 061
     Dates: start: 20050101

REACTIONS (8)
  - ABDOMINAL DISTENSION [None]
  - BOWEL MOVEMENT IRREGULARITY [None]
  - DYSPHAGIA [None]
  - DYSURIA [None]
  - HEADACHE [None]
  - INCORRECT ROUTE OF DRUG ADMINISTRATION [None]
  - NIGHT SWEATS [None]
  - SWOLLEN TONGUE [None]
